FAERS Safety Report 6642785-X (Version None)
Quarter: 2010Q1

REPORT INFORMATION
  Report Type: 
  Country: None (occurrence: None)
  Receive Date: 20100319
  Receipt Date: 20100309
  Transmission Date: 20100710
  Serious: Yes (Other)
  Sender: FDA-Public Use
  Company Number: CA-PFIZER INC-2010010978

PATIENT
  Age: 68 Year
  Sex: Male

DRUGS (4)
  1. GABAPENTIN [Suspect]
     Indication: NEURALGIA
     Dosage: 300 MG, 3X/DAY
     Route: 048
     Dates: start: 20070929, end: 20071003
  2. ZYBAN [Suspect]
     Indication: SMOKING CESSATION THERAPY
     Dosage: 150 MG, 2X/DAY
     Route: 048
     Dates: start: 20070907, end: 20071003
  3. ALTACE [Concomitant]
     Indication: HYPERTENSION
     Dosage: 10 MG, 2X/DAY
     Dates: start: 20051223
  4. TYLENOL W/ CODEINE NO. 2 [Concomitant]
     Indication: PAIN
     Dosage: 1-2 TABLETS, 4XDAILY AS NEEDED
     Dates: start: 20070807

REACTIONS (2)
  - LIP SWELLING [None]
  - URTICARIA [None]
